FAERS Safety Report 7427347-9 (Version None)
Quarter: 2011Q2

REPORT INFORMATION
  Report Type: 
  Country: None (occurrence: None)
  Receive Date: 20110420
  Receipt Date: 20110413
  Transmission Date: 20111010
  Serious: Yes (Hospitalization)
  Sender: FDA-Public Use
  Company Number: FR-PFIZER INC-2011080891

PATIENT
  Age: 72 Year
  Sex: Female

DRUGS (11)
  1. PHENYTOIN [Concomitant]
     Dosage: 7 MG/L, UNK
     Dates: start: 20110108
  2. CARBAMAZEPINE [Concomitant]
     Dosage: 11.6 MG/L, UNK
     Dates: start: 20101128
  3. DEPAKOTE [Suspect]
     Indication: BIPOLAR DISORDER
     Dosage: 500 MG, 1X/DAY
     Route: 048
     Dates: start: 20101101, end: 20101207
  4. EXELON [Concomitant]
     Indication: DEMENTIA
     Dosage: 4.6 MG, 1X/DAY
     Route: 062
  5. SINEMET [Concomitant]
     Indication: DEMENTIA
     Dosage: UNK
     Route: 048
  6. PRODILANTIN [Suspect]
     Indication: STATUS EPILEPTICUS
     Dosage: UNK
     Route: 042
     Dates: start: 20101125, end: 20110125
  7. LAMICTAL [Suspect]
     Indication: EPILEPSY
     Dosage: 25 MG, 1X/DAY
     Route: 048
     Dates: start: 20110104, end: 20110110
  8. LEVOTHYROX [Concomitant]
     Dosage: 50 UG, 1X/DAY
     Route: 048
  9. SERESTA [Concomitant]
     Indication: AGGRESSION
     Dosage: UNK
     Route: 048
     Dates: start: 20101101
  10. TEGRETOL [Suspect]
     Indication: EPILEPSY
     Dosage: UNK
     Route: 048
     Dates: start: 20101128, end: 20110125
  11. INIPOMP [Concomitant]
     Dosage: 40 MG, 1X/DAY
     Route: 048

REACTIONS (1)
  - DRUG RASH WITH EOSINOPHILIA AND SYSTEMIC SYMPTOMS [None]
